FAERS Safety Report 10871645 (Version 1)
Quarter: 2015Q1

REPORT INFORMATION
  Report Type: Spontaneous
  Country: BE (occurrence: BE)
  Receive Date: 20150226
  Receipt Date: 20150226
  Transmission Date: 20150721
  Serious: Yes (Other)
  Sender: FDA-Public Use
  Company Number: BE-TEVA-543384ISR

PATIENT
  Sex: Female

DRUGS (1)
  1. LETROZOLE TEVA [Suspect]
     Active Substance: LETROZOLE

REACTIONS (3)
  - Hot flush [Recovered/Resolved]
  - Suicidal ideation [Recovered/Resolved]
  - Depression [Recovered/Resolved]
